FAERS Safety Report 5463091-5 (Version None)
Quarter: 2007Q3

REPORT INFORMATION
  Report Type: 
  Country: None (occurrence: None)
  Receive Date: 20070920
  Receipt Date: 20070910
  Transmission Date: 20080115
  Serious: Yes (Congenital Anomaly, Other)
  Sender: FDA-Public Use
  Company Number: US-AVENTIS-200716457US

PATIENT
  Sex: Female

DRUGS (1)
  1. GLYBURIDE [Suspect]
     Dosage: DOSE: UNK
     Route: 048

REACTIONS (2)
  - CONGENITAL ANOMALY [None]
  - HYPOGLYCAEMIA NEONATAL [None]
